FAERS Safety Report 7089727-3 (Version None)
Quarter: 2010Q4

REPORT INFORMATION
  Report Type: 
  Country: None (occurrence: None)
  Receive Date: 20101108
  Receipt Date: 20100309
  Transmission Date: 20110411
  Serious: No
  Sender: FDA-Public Use
  Company Number: US-ABBOTT-10P-163-0632165-00

PATIENT
  Sex: Male

DRUGS (4)
  1. TRICOR [Suspect]
     Indication: HYPERLIPIDAEMIA
  2. ASPIRIN [Concomitant]
     Indication: PROPHYLAXIS
     Dates: start: 20100101
  3. NIASPAN [Concomitant]
     Indication: HYPERLIPIDAEMIA
     Dates: start: 20100101, end: 20100310
  4. NIASPAN [Concomitant]
     Dates: start: 20100310

REACTIONS (1)
  - BLOOD TRIGLYCERIDES ABNORMAL [None]
